FAERS Safety Report 4647222-2 (Version None)
Quarter: 2005Q2

REPORT INFORMATION
  Report Type: 
  Country: None (occurrence: None)
  Receive Date: 20050428
  Receipt Date: 20050418
  Transmission Date: 20051028
  Serious: Yes (Other)
  Sender: FDA-Public Use
  Company Number: 200513569GDDC

PATIENT
  Age: 53 Year
  Sex: Female
  Weight: 117.5 kg

DRUGS (8)
  1. ARAVA [Suspect]
     Indication: RHEUMATOID ARTHRITIS
     Route: 048
     Dates: start: 20040901, end: 20050101
  2. ETANERCEPT [Concomitant]
     Indication: RHEUMATOID ARTHRITIS
     Dates: start: 20040101
  3. PREDNISOLONE [Concomitant]
     Indication: RHEUMATOID ARTHRITIS
     Dosage: DOSE: UNK
  4. ALENDRONATE SODIUM [Concomitant]
     Dosage: DOSE: UNK
  5. DICLOFENAC SODIUM [Concomitant]
     Dosage: DOSE: UNK
  6. CALCIUM GLUCONATE [Concomitant]
     Dosage: DOSE: UNK
  7. LANSOPRAZOLE [Concomitant]
     Dosage: DOSE: UNK
  8. MS CONTIN [Concomitant]
     Dosage: DOSE: UNK

REACTIONS (6)
  - BRONCHIOLITIS [None]
  - DYSPNOEA [None]
  - DYSPNOEA EXERTIONAL [None]
  - OBSTRUCTIVE AIRWAYS DISORDER [None]
  - RASH [None]
  - WHEEZING [None]
